FAERS Safety Report 8322585-5 (Version None)
Quarter: 2012Q2

REPORT INFORMATION
  Report Type: 
  Country: None (occurrence: None)
  Receive Date: 20120430
  Receipt Date: 20120418
  Transmission Date: 20120825
  Serious: Yes (Life-Threatening, Hospitalization, Other)
  Sender: FDA-Public Use
  Company Number: CN-JNJFOC-20110911475

PATIENT
  Sex: Male
  Weight: 30 kg

DRUGS (1)
  1. REMICADE [Suspect]
     Indication: CROHN'S DISEASE
     Route: 042
     Dates: start: 20110829, end: 20110829

REACTIONS (3)
  - FUNGAL INFECTION [None]
  - SEPSIS [None]
  - KAWASAKI'S DISEASE [None]
